FAERS Safety Report 21075310 (Version 1)
Quarter: 2022Q3

REPORT INFORMATION
  Report Type: Spontaneous
  Country: US (occurrence: None)
  Receive Date: 20220712
  Receipt Date: 20220712
  Transmission Date: 20221026
  Serious: No
  Sender: FDA-Public Use
  Company Number: None

PATIENT
  Sex: Female

DRUGS (1)
  1. ENBREL [Suspect]
     Active Substance: ETANERCEPT
     Indication: Ankylosing spondylitis
     Dosage: 50MG EVERY WEEK SUBQ
     Route: 058
     Dates: start: 202205

REACTIONS (5)
  - Device defective [None]
  - Device leakage [None]
  - Device issue [None]
  - Incorrect dose administered by device [None]
  - Condition aggravated [None]
